FAERS Safety Report 5449317-2 (Version None)
Quarter: 2007Q3

REPORT INFORMATION
  Report Type: 
  Country: None (occurrence: None)
  Receive Date: 20070911
  Receipt Date: 20070830
  Transmission Date: 20080115
  Serious: Yes (Other)
  Sender: FDA-Public Use
  Company Number: US-PFIZER INC-2007067702

PATIENT
  Sex: Female
  Weight: 75.909 kg

DRUGS (10)
  1. CHANTIX [Suspect]
     Indication: SMOKING CESSATION THERAPY
     Route: 048
     Dates: start: 20070501, end: 20070806
  2. VICODIN [Concomitant]
     Indication: PAIN
  3. ASPIRIN [Concomitant]
  4. POTASSIUM CHLORIDE [Concomitant]
  5. LEXAPRO [Concomitant]
     Dosage: DAILY DOSE:200MG
  6. BENTYL [Concomitant]
     Indication: GALLBLADDER DISORDER
     Dosage: DAILY DOSE:10MG
  7. CORTICOSTEROIDS [Concomitant]
     Indication: ARTHRITIS
  8. TRAZODONE HCL [Concomitant]
     Indication: ARTHRITIS
  9. ZETIA [Concomitant]
     Dosage: DAILY DOSE:10MG
  10. LIPITOR [Concomitant]
     Dosage: DAILY DOSE:80MG

REACTIONS (4)
  - APNOEA [None]
  - CHOLECYSTECTOMY [None]
  - DIARRHOEA [None]
  - NAUSEA [None]
